FAERS Safety Report 7031351-2 (Version None)
Quarter: 2010Q4

REPORT INFORMATION
  Report Type: 
  Country: None (occurrence: None)
  Receive Date: 20101006
  Receipt Date: 20100927
  Transmission Date: 20110411
  Serious: Yes (Other)
  Sender: FDA-Public Use
  Company Number: GB-TYCO HEALTHCARE/MALLINCKRODT-T201002058

PATIENT
  Age: 9 Year
  Sex: Male

DRUGS (1)
  1. METHYLIN [Suspect]
     Dosage: 28 MG, QD

REACTIONS (1)
  - SLEEP TERROR [None]
